FAERS Safety Report 8348654-1 (Version None)
Quarter: 2012Q2

REPORT INFORMATION
  Report Type: 
  Country: None (occurrence: None)
  Receive Date: 20120510
  Receipt Date: 20120427
  Transmission Date: 20120825
  Serious: Yes (Hospitalization)
  Sender: FDA-Public Use
  Company Number: CO-ELI_LILLY_AND_COMPANY-CO201205000263

PATIENT
  Age: 62 Year
  Sex: Female

DRUGS (5)
  1. FORTEO [Suspect]
     Indication: OSTEOPOROSIS
     Dosage: 20 UG, QD
     Route: 058
     Dates: start: 20101101, end: 20120401
  2. OXYCODONE HCL [Concomitant]
  3. OMEPRAZOLE [Concomitant]
  4. NAPROXEN [Concomitant]
  5. LEFLUNOMIDE [Concomitant]

REACTIONS (2)
  - SPINAL OPERATION [None]
  - SPINAL PAIN [None]
